FAERS Safety Report 15384147 (Version 1)
Quarter: 2018Q3

REPORT INFORMATION
  Report Type: Spontaneous
  Country: US (occurrence: US)
  Receive Date: 20180914
  Receipt Date: 20180914
  Transmission Date: 20181010
  Serious: Yes (Hospitalization, Other)
  Sender: FDA-Public Use
  Company Number: US-CONCORDIA PHARMACEUTICALS INC.-GSH201808-002965

PATIENT
  Sex: Female
  Weight: 79.4 kg

DRUGS (23)
  1. SAVELLA [Suspect]
     Active Substance: MILNACIPRAN HYDROCHLORIDE
     Indication: ABDOMINAL PAIN UPPER
     Dosage: 5MG TITRATION PACK,
     Route: 065
  2. PRILOSEC [Concomitant]
     Active Substance: OMEPRAZOLE MAGNESIUM
     Dosage: FROM MAY OR JUN2012  AT 10MG ONCE A DAY AFTER EVENING MEAL
     Dates: start: 2012
  3. SENNADOCUSATE [Concomitant]
     Dosage: 8.6/50MG TAKING 2 PER DAY AND SOMETIMES TOOK 3?4 A DAY
     Route: 048
  4. PLAQUENIL [Suspect]
     Active Substance: HYDROXYCHLOROQUINE SULFATE
     Indication: PRODUCT USED FOR UNKNOWN INDICATION
     Route: 065
     Dates: start: 2013
  5. ZOLOFT [Suspect]
     Active Substance: SERTRALINE HYDROCHLORIDE
     Indication: DEPRESSION
     Route: 065
  6. POTASSIUM CHLORIDE. [Concomitant]
     Active Substance: POTASSIUM CHLORIDE
     Dosage: MAY OR JUN2012 AT 10 MEQ ONCE A DAY BECAUSE SHE WAS TAKING DIURETIC,
     Dates: start: 2012
  7. PREDNISONE. [Suspect]
     Active Substance: PREDNISONE
     Indication: PRODUCT USED FOR UNKNOWN INDICATION
     Route: 065
     Dates: start: 2012
  8. VITAMIN D3 [Concomitant]
     Active Substance: CHOLECALCIFEROL
     Dosage: 1000 IU
     Dates: start: 2012
  9. HYDROCODONE [Concomitant]
     Active Substance: HYDROCODONE
     Indication: PAIN
     Dates: start: 201206, end: 20170922
  10. TYLENOL [Concomitant]
     Active Substance: ACETAMINOPHEN
     Indication: PAIN
     Dosage: 325MG AS NEEDED AND TAKEN 1?2 FOR PAIN
     Route: 048
     Dates: start: 201708
  11. CLONIDINE. [Concomitant]
     Active Substance: CLONIDINE
     Indication: BLOOD PRESSURE MEASUREMENT
     Dates: start: 2015
  12. LATANOPROST. [Concomitant]
     Active Substance: LATANOPROST
     Indication: GLAUCOMA
     Dosage: AUG OR SEP2012
     Dates: start: 2012
  13. HYDROCODONE [Concomitant]
     Active Substance: HYDROCODONE
     Dates: end: 201710
  14. SULFASALAZINE. [Suspect]
     Active Substance: SULFASALAZINE
     Indication: PRODUCT USED FOR UNKNOWN INDICATION
     Route: 065
     Dates: start: 2013
  15. XELJANZ [Suspect]
     Active Substance: TOFACITINIB CITRATE
     Indication: RHEUMATOID ARTHRITIS
     Route: 048
     Dates: start: 20160816
  16. FISH OIL [Concomitant]
     Active Substance: FISH OIL
     Dates: start: 2015
  17. TORSEMIDE. [Concomitant]
     Active Substance: TORSEMIDE
     Indication: PERIPHERAL SWELLING
     Dates: start: 2012
  18. ENBREL [Suspect]
     Active Substance: ETANERCEPT
     Indication: PRODUCT USED FOR UNKNOWN INDICATION
     Route: 065
  19. METHOTREXATE SODIUM. [Suspect]
     Active Substance: METHOTREXATE SODIUM
     Indication: RHEUMATOID ARTHRITIS
     Route: 065
     Dates: start: 2012
  20. ZOLOFT [Suspect]
     Active Substance: SERTRALINE HYDROCHLORIDE
     Indication: AFFECTIVE DISORDER
  21. ASPIRIN. [Concomitant]
     Active Substance: ASPIRIN
     Route: 048
     Dates: start: 2012
  22. VITAMIN D [Concomitant]
     Active Substance: CHOLECALCIFEROL
  23. HYDROCODONE [Concomitant]
     Active Substance: HYDROCODONE

REACTIONS (22)
  - Muscle tightness [Unknown]
  - Blood pressure abnormal [Unknown]
  - Mood altered [Unknown]
  - Peripheral swelling [Recovering/Resolving]
  - Chest pain [Unknown]
  - Cardiac failure congestive [Unknown]
  - Glaucoma [Not Recovered/Not Resolved]
  - Fibromyalgia [Unknown]
  - Pain [Unknown]
  - Weight increased [Not Recovered/Not Resolved]
  - Body height decreased [Unknown]
  - Abdominal pain upper [Unknown]
  - Rheumatoid arthritis [Not Recovered/Not Resolved]
  - Lung disorder [Unknown]
  - Depression [Unknown]
  - Drug ineffective [Unknown]
  - Myalgia [Unknown]
  - Constipation [Unknown]
  - Hair texture abnormal [Unknown]
  - Cataract [Unknown]
  - Loss of personal independence in daily activities [Recovered/Resolved]
  - Rash [Unknown]

NARRATIVE: CASE EVENT DATE: 2006
